FAERS Safety Report 8044608-3 (Version None)
Quarter: 2012Q1

REPORT INFORMATION
  Report Type: 
  Country: None (occurrence: None)
  Receive Date: 20120113
  Receipt Date: 20120113
  Transmission Date: 20120608
  Serious: No
  Sender: FDA-Public Use
  Company Number: None

PATIENT
  Age: 71 Year
  Sex: Female
  Weight: 88.45 kg

DRUGS (1)
  1. VENLAFAXINE HCL EXTENDED-RELEASE [Suspect]
     Indication: MAJOR DEPRESSION
     Dosage: 150MG XR
     Route: 048
     Dates: start: 20120112, end: 20120112

REACTIONS (3)
  - CAPSULE PHYSICAL ISSUE [None]
  - MEDICATION ERROR [None]
  - INCORRECT DOSE ADMINISTERED [None]
